FAERS Safety Report 8231432-1 (Version None)
Quarter: 2012Q1

REPORT INFORMATION
  Report Type: 
  Country: None (occurrence: None)
  Receive Date: 20120323
  Receipt Date: 20120319
  Transmission Date: 20120608
  Serious: Yes (Other)
  Sender: FDA-Public Use
  Company Number: ZA-ABBOTT-12P-143-0906769-00

PATIENT
  Sex: Female

DRUGS (7)
  1. HUMIRA [Suspect]
     Indication: JUVENILE ARTHRITIS
     Route: 058
     Dates: start: 20100801, end: 20120301
  2. METHOTREXATE [Concomitant]
     Indication: JUVENILE ARTHRITIS
  3. NITROXIN [Concomitant]
     Indication: PRODUCT USED FOR UNKNOWN INDICATION
  4. TRAMADOL HCL [Concomitant]
     Indication: JUVENILE ARTHRITIS
  5. SIMVACOR [Concomitant]
     Indication: PRODUCT USED FOR UNKNOWN INDICATION
  6. FOLIC ACID [Concomitant]
     Indication: VITAMIN SUPPLEMENTATION
  7. PREDNISONE TAB [Concomitant]
     Indication: JUVENILE ARTHRITIS

REACTIONS (7)
  - DECREASED APPETITE [None]
  - COUGH [None]
  - PULMONARY OEDEMA [None]
  - DEHYDRATION [None]
  - PYREXIA [None]
  - NIGHT SWEATS [None]
  - TUBERCULOSIS [None]
